FAERS Safety Report 9510163 (Version 1)
Quarter: 2013Q3

REPORT INFORMATION
  Report Type: Spontaneous
  Country: US (occurrence: US)
  Receive Date: 20130909
  Receipt Date: 20130909
  Transmission Date: 20140515
  Serious: No
  Sender: FDA-Public Use
  Company Number: US-BRISTOL-MYERS SQUIBB COMPANY-18732024

PATIENT
  Age: 55 Year
  Sex: Female
  Weight: 99.77 kg

DRUGS (2)
  1. ABILIFY [Suspect]
     Indication: BIPOLAR DISORDER
     Dosage: 10MG
  2. MORPHINE [Concomitant]
     Indication: PAIN

REACTIONS (1)
  - Tremor [Unknown]
